FAERS Safety Report 6982041-3 (Version None)
Quarter: 2010Q3

REPORT INFORMATION
  Report Type: 
  Country: None (occurrence: None)
  Receive Date: 20100914
  Receipt Date: 20091208
  Transmission Date: 20110219
  Serious: Yes (Other)
  Sender: FDA-Public Use
  Company Number: US-PFIZER INC-2009272961

PATIENT
  Sex: Female
  Weight: 92.971 kg

DRUGS (2)
  1. LYRICA [Suspect]
     Indication: MIGRAINE
     Dosage: UNK
     Route: 048
     Dates: start: 20070103, end: 20070401
  2. CLONAZEPAM [Concomitant]
     Indication: MIGRAINE
     Dosage: 0.5 MG, 2X/DAY
     Route: 048

REACTIONS (3)
  - SOMNOLENCE [None]
  - SWELLING FACE [None]
  - WEIGHT INCREASED [None]
